FAERS Safety Report 8520699-8 (Version None)
Quarter: 2012Q3

REPORT INFORMATION
  Report Type: 
  Country: None (occurrence: None)
  Receive Date: 20120719
  Receipt Date: 20120710
  Transmission Date: 20120928
  Serious: No
  Sender: FDA-Public Use
  Company Number: US-B.I. PHARMACEUTICALS,INC./RIDGEFIELD-2012-BP-15386BP

PATIENT
  Sex: Male

DRUGS (10)
  1. HYDROCODONE BITARTRATE [Concomitant]
     Indication: BACK PAIN
     Dosage: 30 MG
     Route: 048
     Dates: start: 19980101
  2. OMEPRAZOLE [Concomitant]
     Indication: ABDOMINAL DISCOMFORT
     Route: 048
  3. SINGULAIR [Concomitant]
     Indication: DYSPNOEA
     Route: 048
  4. ADVAIR DISKUS 100/50 [Concomitant]
     Indication: DYSPNOEA
     Route: 055
  5. MELOXICAM [Concomitant]
     Indication: BACK DISORDER
     Dosage: 7.5 MG
  6. ALBUTEROL [Concomitant]
     Indication: DYSPNOEA
     Route: 055
  7. SPIRIVA [Suspect]
     Indication: DYSPNOEA
     Dosage: 18 MCG
     Route: 055
     Dates: start: 20120601
  8. GABAPENTIN [Concomitant]
     Indication: NERVE INJURY
     Dosage: STRENGTH: 100 MG; DAILY DOSE: 400 MG
     Route: 048
  9. DIAZEPAM [Concomitant]
     Indication: NERVE INJURY
     Dosage: 10 MG
     Route: 048
  10. LISINOPRIL [Concomitant]
     Indication: BLOOD PRESSURE
     Dosage: 10 MG
     Route: 048

REACTIONS (1)
  - INCORRECT ROUTE OF DRUG ADMINISTRATION [None]
